FAERS Safety Report 6086079-2 (Version None)
Quarter: 2009Q1

REPORT INFORMATION
  Report Type: 
  Country: None (occurrence: None)
  Receive Date: 20090220
  Receipt Date: 20090218
  Transmission Date: 20090719
  Serious: Yes (Death, Hospitalization)
  Sender: FDA-Public Use
  Company Number: PHHY2009CO05960

PATIENT
  Sex: Female

DRUGS (11)
  1. DIOVAN [Suspect]
     Indication: HYPERTENSION
     Dosage: 320 MG, QD
     Route: 048
     Dates: start: 20060101, end: 20081128
  2. ZOCOR [Concomitant]
     Dosage: 20 MG/DAY AT NIGHT
  3. RENITEC                                 /NET/ [Concomitant]
  4. LASIX [Concomitant]
     Dosage: 40 MG/DAY
  5. LANITOP [Concomitant]
  6. EUGLUCON [Concomitant]
  7. AMARYL [Concomitant]
  8. HUMULIN R [Concomitant]
  9. ATIVAN [Concomitant]
  10. RIVOTRIL [Concomitant]
  11. NEXIUM [Concomitant]
     Dosage: 40 MG/DAY

REACTIONS (4)
  - ACUTE MYOCARDIAL INFARCTION [None]
  - DEATH [None]
  - PULMONARY OEDEMA [None]
  - RENAL FAILURE [None]
